FAERS Safety Report 7432649-6 (Version None)
Quarter: 2011Q2

REPORT INFORMATION
  Report Type: 
  Country: None (occurrence: None)
  Receive Date: 20110422
  Receipt Date: 20110411
  Transmission Date: 20111010
  Serious: Yes (Other)
  Sender: FDA-Public Use
  Company Number: PHHY2011US30959

PATIENT
  Sex: Male

DRUGS (6)
  1. DIOVAN [Suspect]
     Dosage: 320 MG, QD
  2. CIALIS [Concomitant]
  3. MENAFORM [Concomitant]
  4. PARVASTATIN [Concomitant]
  5. NOVARSC [Concomitant]
  6. LISINOPRIL [Concomitant]

REACTIONS (3)
  - THROMBOSIS [None]
  - CEREBROVASCULAR ACCIDENT [None]
  - FEELING ABNORMAL [None]
